FAERS Safety Report 7282709-8 (Version None)
Quarter: 2010Q4

REPORT INFORMATION
  Report Type: 
  Country: None (occurrence: None)
  Receive Date: 20101221
  Receipt Date: 20091229
  Transmission Date: 20110411
  Serious: Yes (Other)
  Sender: FDA-Public Use
  Company Number: WAES 0910USA01928

PATIENT
  Age: 63 Year
  Sex: Female

DRUGS (7)
  1. JANUVIA [Suspect]
     Indication: BLOOD GLUCOSE
     Dosage: 100 MG/DAILY/PO, 50 MG/BID/PO, PO
     Route: 048
     Dates: start: 20090401, end: 20090101
  2. JANUVIA [Suspect]
     Indication: BLOOD GLUCOSE
     Dosage: 100 MG/DAILY/PO, 50 MG/BID/PO, PO
     Route: 048
     Dates: start: 20090101, end: 20090930
  3. JANUVIA [Suspect]
     Indication: BLOOD GLUCOSE
     Dosage: 100 MG/DAILY/PO, 50 MG/BID/PO, PO
     Route: 048
     Dates: start: 20091001
  4. ALPRAZOLAM [Concomitant]
  5. GLIMEPIRIDE [Concomitant]
  6. HYDROCHLOROTHIAZIDE [Concomitant]
  7. MECLIZINE [Concomitant]

REACTIONS (3)
  - ABDOMINAL DISCOMFORT [None]
  - PANCREATITIS [None]
  - WRONG TECHNIQUE IN DRUG USAGE PROCESS [None]
